FAERS Safety Report 5541445-6 (Version None)
Quarter: 2007Q4

REPORT INFORMATION
  Report Type: 
  Country: None (occurrence: None)
  Receive Date: 20071210
  Receipt Date: 20071126
  Transmission Date: 20080405
  Serious: Yes (Other)
  Sender: FDA-Public Use
  Company Number: US-BAYER-US-2007-041769

PATIENT
  Age: 27 Year
  Sex: Female
  Weight: 64 kg

DRUGS (2)
  1. MIRENA [Suspect]
     Indication: CONTRACEPTION
     Route: 015
     Dates: start: 20071008, end: 20071011
  2. PRENATAL PLUS [Concomitant]
     Indication: POSTPARTUM STATE
     Route: 048

REACTIONS (2)
  - ABDOMINAL PAIN [None]
  - UTERINE PERFORATION [None]
